FAERS Safety Report 10929710 (Version 2)
Quarter: 2015Q2

REPORT INFORMATION
  Report Type: Spontaneous
  Country: ES (occurrence: ES)
  Receive Date: 20150319
  Receipt Date: 20150420
  Transmission Date: 20150821
  Serious: Yes (Life-Threatening, Hospitalization, Other)
  Sender: FDA-Public Use
  Company Number: ES-SHIRE-ES201502228

PATIENT
  Age: 64 Year
  Sex: Female
  Weight: 50 kg

DRUGS (5)
  1. FOSRENOL [Suspect]
     Active Substance: LANTHANUM CARBONATE
     Indication: HYPERPARATHYROIDISM SECONDARY
     Dosage: 1000 MG, 3X/DAY:TID (BREAKFAST, LUNCH, DINNER)
     Route: 048
     Dates: start: 20080220, end: 20150220
  2. AMIODARONE [Concomitant]
     Active Substance: AMIODARONE
     Indication: ATRIAL FIBRILLATION
     Dosage: 200 MG, UNKNOWN (PER DAY)
     Route: 065
     Dates: start: 201002
  3. EMCONCOR [Concomitant]
     Active Substance: BISOPROLOL FUMARATE
     Indication: ATRIAL FIBRILLATION
     Dosage: 2.5 G, UNKNOWN (PER DAY)
     Route: 065
     Dates: start: 201411
  4. ATORVASTATIN [Concomitant]
     Active Substance: ATORVASTATIN
     Indication: HYPERLIPIDAEMIA
     Dosage: 10 MG, UNKNOWN (PER DAY)
     Route: 065
     Dates: start: 201007
  5. FOSRENOL [Suspect]
     Active Substance: LANTHANUM CARBONATE
     Indication: HYPERPHOSPHATAEMIA

REACTIONS (5)
  - Rectal perforation [Recovered/Resolved with Sequelae]
  - Vaginal perforation [Recovered/Resolved with Sequelae]
  - Female genital tract fistula [Unknown]
  - Medication residue present [Unknown]
  - Faecaloma [Recovered/Resolved with Sequelae]

NARRATIVE: CASE EVENT DATE: 201502
